FAERS Safety Report 16855924 (Version 2)
Quarter: 2019Q4

REPORT INFORMATION
  Report Type: Spontaneous
  Country: JP (occurrence: JP)
  Receive Date: 20190926
  Receipt Date: 20191004
  Transmission Date: 20200122
  Serious: Yes (Life-Threatening, Hospitalization, Other)
  Sender: FDA-Public Use
  Company Number: JP-TAKEDA-2019TJP021053

PATIENT
  Sex: Female
  Weight: 42.5 kg

DRUGS (10)
  1. H2-RECEPTOR ANTAGONISTS [Concomitant]
     Active Substance: UNSPECIFIED INGREDIENT
  2. HYDROCHLOROTHIAZIDE. [Concomitant]
     Active Substance: HYDROCHLOROTHIAZIDE
     Dosage: UNK
  3. LANSPORAZOLE [Suspect]
     Active Substance: LANSOPRAZOLE
     Indication: GASTROINTESTINAL HAEMORRHAGE
     Dosage: 30 MILLIGRAM, QD
     Route: 048
     Dates: start: 20090121, end: 20110702
  4. EVISTA [Concomitant]
     Active Substance: RALOXIFENE HYDROCHLORIDE
     Dosage: UNK
  5. URSODEOXYCHOLIC ACID [Concomitant]
     Active Substance: URSODIOL
  6. CALBLOCK [Concomitant]
     Active Substance: AZELNIDIPINE
     Dosage: UNK
  7. LANSPORAZOLE [Suspect]
     Active Substance: LANSOPRAZOLE
     Indication: GASTRITIS EROSIVE
  8. DIOVAN [Concomitant]
     Active Substance: VALSARTAN
     Dosage: UNK
  9. PARACETAMOL [Concomitant]
     Active Substance: ACETAMINOPHEN
     Dosage: UNK
  10. ALFAROL [Concomitant]
     Active Substance: ALFACALCIDOL
     Dosage: UNK

REACTIONS (6)
  - Diarrhoea [Unknown]
  - Gait disturbance [Unknown]
  - Weight decreased [Unknown]
  - Altered state of consciousness [Unknown]
  - Colitis microscopic [Recovered/Resolved]
  - Hepatic encephalopathy [Unknown]
